FAERS Safety Report 18459130 (Version 6)
Quarter: 2021Q1

REPORT INFORMATION
  Report Type: Report from Study
  Country: US (occurrence: US)
  Receive Date: 20201103
  Receipt Date: 20210112
  Transmission Date: 20210419
  Serious: Yes (Other)
  Sender: FDA-Public Use
  Company Number: US-MYLANLABS-2020M1091687

PATIENT
  Sex: Male
  Weight: 98 kg

DRUGS (2)
  1. GLATIRAMER ACETATE INJECTION [Suspect]
     Active Substance: GLATIRAMER ACETATE
     Indication: MULTIPLE SCLEROSIS
     Dosage: 40 MILLIGRAM, 3XW
     Route: 058
  2. WHISPERJECT? AUTOINJECTOR [Suspect]
     Active Substance: DEVICE
     Indication: MULTIPLE SCLEROSIS
     Dosage: UNK

REACTIONS (8)
  - Dizziness [Recovered/Resolved]
  - Injection site haemorrhage [Unknown]
  - Device issue [Recovered/Resolved]
  - Chills [Recovered/Resolved]
  - Nausea [Unknown]
  - Device difficult to use [Unknown]
  - Therapeutic product effect decreased [Unknown]
  - Device leakage [Unknown]
